FAERS Safety Report 21054797 (Version 6)
Quarter: 2022Q4

REPORT INFORMATION
  Report Type: Spontaneous
  Country: US (occurrence: US)
  Receive Date: 20220707
  Receipt Date: 20221020
  Transmission Date: 20230113
  Serious: Yes (Other)
  Sender: FDA-Public Use
  Company Number: US-PFIZER INC-PV202200013897

PATIENT
  Age: 75 Year
  Sex: Female
  Weight: 91.63 kg

DRUGS (3)
  1. TOVIAZ [Suspect]
     Active Substance: FESOTERODINE FUMARATE
     Dosage: 4 MG, 1X/DAY
  2. TOVIAZ [Suspect]
     Active Substance: FESOTERODINE FUMARATE
     Dosage: 8 MG, 1X/DAY
  3. TOVIAZ [Suspect]
     Active Substance: FESOTERODINE FUMARATE
     Dosage: 4 MG, 2X/DAY
     Route: 048

REACTIONS (6)
  - Diabetes mellitus [Unknown]
  - Off label use [Unknown]
  - Product prescribing error [Unknown]
  - Palpitations [Recovered/Resolved]
  - Discomfort [Unknown]
  - Mood altered [Unknown]

NARRATIVE: CASE EVENT DATE: 20220301
